FAERS Safety Report 8328687-1 (Version None)
Quarter: 2012Q2

REPORT INFORMATION
  Report Type: 
  Country: None (occurrence: None)
  Receive Date: 20120502
  Receipt Date: 20100820
  Transmission Date: 20120825
  Serious: No
  Sender: FDA-Public Use
  Company Number: US-TEVA-2010004448

PATIENT
  Sex: Female

DRUGS (3)
  1. VALIUM [Concomitant]
     Indication: MUSCLE SPASMS
     Dates: start: 20050101
  2. TYLENOL ARTHRITIS [Concomitant]
     Indication: PAIN
  3. NUVIGIL [Suspect]
     Indication: FATIGUE
     Dosage: 150 MILLIGRAM;
     Route: 048
     Dates: start: 20100805

REACTIONS (2)
  - DRUG INEFFECTIVE [None]
  - HEART RATE INCREASED [None]
